FAERS Safety Report 4559068-4 (Version None)
Quarter: 2005Q1

REPORT INFORMATION
  Report Type: 
  Country: None (occurrence: None)
  Receive Date: 20050124
  Receipt Date: 20050113
  Transmission Date: 20050727
  Serious: Yes (Hospitalization)
  Sender: FDA-Public Use
  Company Number: US-BRISTOL-MYERS SQUIBB COMPANY-12829040

PATIENT
  Age: 73 Year
  Sex: Male

DRUGS (11)
  1. METOPROLOL TARTRATE [Suspect]
     Indication: HYPERTENSION
     Dates: start: 20020620, end: 20030927
  2. FUROSEMIDE [Suspect]
     Dates: start: 20030812, end: 20030927
  3. NIFEDIPINE [Suspect]
  4. PRINIVIL [Suspect]
     Route: 048
     Dates: start: 20030501
  5. TERAZOSIN HCL [Suspect]
     Indication: BENIGN PROSTATIC HYPERPLASIA
     Dosage: HS (AT BEDTIME)
     Dates: start: 20030312, end: 20030927
  6. NOVOLIN 70/30 [Concomitant]
  7. ALBUTEROL [Concomitant]
  8. ALLOPURINOL [Concomitant]
  9. ASPIRIN [Concomitant]
  10. FLUNISOLIDE [Concomitant]
  11. IPATROPIUM BROMIDE [Concomitant]

REACTIONS (3)
  - BRADYCARDIA [None]
  - HYPOTENSION [None]
  - SYNCOPE [None]
